FAERS Safety Report 6083219-6 (Version None)
Quarter: 2009Q1

REPORT INFORMATION
  Report Type: 
  Country: None (occurrence: None)
  Receive Date: 20090213
  Receipt Date: 20090213
  Transmission Date: 20090719
  Serious: Yes (Other)
  Sender: FDA-Public Use
  Company Number: None

PATIENT
  Sex: Male
  Weight: 88.4968 kg

DRUGS (1)
  1. TYLENOL W/ CODEINE NO. 4 [Suspect]
     Indication: MUSCULOSKELETAL PAIN
     Dosage: Q4-6 PRN PO 12 YEARS AGO
     Route: 048

REACTIONS (2)
  - FATIGUE [None]
  - RASH GENERALISED [None]
